FAERS Safety Report 12433162 (Version 1)
Quarter: 2016Q2

REPORT INFORMATION
  Report Type: Spontaneous
  Country: KR (occurrence: KR)
  Receive Date: 20160603
  Receipt Date: 20160603
  Transmission Date: 20160815
  Serious: Yes (Other)
  Sender: FDA-Public Use
  Company Number: KR-SUN PHARMACEUTICAL INDUSTRIES LTD-2016RR-117859

PATIENT
  Age: 53 Year
  Sex: Male

DRUGS (7)
  1. ASPIRIN. [Interacting]
     Active Substance: ASPIRIN
     Indication: ACUTE MYOCARDIAL INFARCTION
     Dosage: 300 MG, UNK
     Route: 065
  2. CLOPIDOGREL [Suspect]
     Active Substance: CLOPIDOGREL BISULFATE
     Indication: ACUTE MYOCARDIAL INFARCTION
     Dosage: 300 MG, UNK
     Route: 065
  3. ABCIXIMAB [Interacting]
     Active Substance: ABCIXIMAB
     Indication: THROMBOSIS IN DEVICE
     Dosage: 0.125 ?G/KG/MIN, CONTINUOUS INFUSION
     Route: 040
  4. HEPARIN [Interacting]
     Active Substance: HEPARIN SODIUM
     Indication: ACUTE MYOCARDIAL INFARCTION
     Dosage: 4000 U,
     Route: 042
  5. HEPARIN [Interacting]
     Active Substance: HEPARIN SODIUM
     Dosage: 860 U/H
     Route: 042
  6. HEPARIN [Interacting]
     Active Substance: HEPARIN SODIUM
     Dosage: 6 U/KG/H, UNK
     Route: 042
  7. ABCIXIMAB [Interacting]
     Active Substance: ABCIXIMAB
     Dosage: 0.125 ?G/KG/MIN, CONTINUOUS INFUSION
     Route: 042

REACTIONS (3)
  - Spontaneous haemorrhage [Recovered/Resolved]
  - Drug interaction [Recovered/Resolved]
  - Hypovolaemic shock [Recovered/Resolved]
